FAERS Safety Report 4458096-7 (Version None)
Quarter: 2004Q3

REPORT INFORMATION
  Report Type: 
  Country: None (occurrence: None)
  Receive Date: 20040922
  Receipt Date: 20040809
  Transmission Date: 20050211
  Serious: Yes (Disabling)
  Sender: FDA-Public Use
  Company Number: JP_040403029

PATIENT
  Age: 17 Year
  Sex: Male

DRUGS (6)
  1. ONCOVIN [Suspect]
     Indication: LYMPHOMA
     Dosage: 2 MG OTHER
     Dates: start: 20031008, end: 20040306
  2. METHOTREXATE [Concomitant]
  3. CALCIUM FOLINATE [Concomitant]
  4. CYCLOPHOSPHAMIDE [Concomitant]
  5. DOXORUBICIN HCL [Concomitant]
  6. DEXAMETHASONE [Concomitant]

REACTIONS (4)
  - DIFFICULTY IN WALKING [None]
  - GAIT DISTURBANCE [None]
  - HYPOAESTHESIA [None]
  - NEUROPATHY PERIPHERAL [None]
